FAERS Safety Report 8437515-5 (Version None)
Quarter: 2012Q2

REPORT INFORMATION
  Report Type: 
  Country: None (occurrence: None)
  Receive Date: 20120614
  Receipt Date: 20120413
  Transmission Date: 20120825
  Serious: No
  Sender: FDA-Public Use
  Company Number: US-AMGEN-USASP2012023583

PATIENT
  Age: 84 Year
  Sex: Female

DRUGS (1)
  1. XGEVA [Suspect]
     Indication: LUNG CANCER METASTATIC
     Dosage: UNK UNK, Q4WK
     Dates: start: 20110822

REACTIONS (2)
  - PAIN IN JAW [None]
  - TOOTH INFECTION [None]
